FAERS Safety Report 8582754-6 (Version None)
Quarter: 2012Q3

REPORT INFORMATION
  Report Type: 
  Country: None (occurrence: None)
  Receive Date: 20120809
  Receipt Date: 20120806
  Transmission Date: 20120928
  Serious: Yes (Other)
  Sender: FDA-Public Use
  Company Number: PHEH2012US012002

PATIENT
  Sex: Female

DRUGS (1)
  1. EXTAVIA [Suspect]

REACTIONS (1)
  - ANEURYSM [None]
